FAERS Safety Report 13062612 (Version 1)
Quarter: 2016Q4

REPORT INFORMATION
  Report Type: Spontaneous
  Country: US (occurrence: US)
  Receive Date: 20161226
  Receipt Date: 20161226
  Transmission Date: 20170207
  Serious: Yes (Hospitalization)
  Sender: FDA-Public Use
  Company Number: US-IMPAX LABORATORIES, INC-2016-IPXL-02376

PATIENT
  Age: 10 Year
  Sex: Male

DRUGS (4)
  1. BACLOFEN. [Suspect]
     Active Substance: BACLOFEN
     Dosage: 3 ?G, DAILY
     Route: 037
  2. BACLOFEN. [Suspect]
     Active Substance: BACLOFEN
     Indication: MUSCLE SPASTICITY
     Dosage: UNK
     Route: 037
     Dates: start: 200811
  3. BACLOFEN. [Suspect]
     Active Substance: BACLOFEN
     Dosage: 40 ML OF 500 ?G/ML, UNK
     Route: 037
     Dates: start: 201307
  4. BACLOFEN. [Suspect]
     Active Substance: BACLOFEN
     Dosage: 50 ?G/DAY AT INTERVAL OF THREE TIMES
     Route: 037

REACTIONS (6)
  - Respiratory depression [Recovered/Resolved]
  - Drug withdrawal syndrome [Recovered/Resolved]
  - Bradycardia [Recovered/Resolved]
  - Unresponsive to stimuli [Recovered/Resolved]
  - Hypotonia [Recovered/Resolved]
  - Overdose [Recovered/Resolved]

NARRATIVE: CASE EVENT DATE: 201307
